FAERS Safety Report 13406238 (Version 1)
Quarter: 2017Q2

REPORT INFORMATION
  Report Type: Spontaneous
  Country: US (occurrence: US)
  Receive Date: 20170405
  Receipt Date: 20170405
  Transmission Date: 20170830
  Serious: No
  Sender: FDA-Public Use
  Company Number: US-HORIZON-RAV-0094-2017

PATIENT
  Age: 32 Year
  Sex: Female

DRUGS (3)
  1. KEPPRA [Concomitant]
     Active Substance: LEVETIRACETAM
     Indication: SEIZURE
  2. RAVICTI [Suspect]
     Active Substance: GLYCEROL PHENYLBUTYRATE
     Indication: ORNITHINE TRANSCARBAMOYLASE DEFICIENCY
     Dosage: 4.5 ML TID
  3. CITRULLINE [Concomitant]
     Active Substance: CITRULLINE

REACTIONS (2)
  - Laboratory test abnormal [Unknown]
  - Amino acid level decreased [Unknown]
